FAERS Safety Report 14491601 (Version 4)
Quarter: 2018Q2

REPORT INFORMATION
  Report Type: Report from Study
  Country: None (occurrence: TR)
  Receive Date: 20180206
  Receipt Date: 20180518
  Transmission Date: 20180711
  Serious: Yes (Hospitalization)
  Sender: FDA-Public Use
  Company Number: TR-ABBVIE-18K-161-2245289-00

PATIENT
  Age: 69 Year
  Sex: Male

DRUGS (5)
  1. DUODOPA [Suspect]
     Active Substance: CARBIDOPA\LEVODOPA
     Dosage: MORNING DOSE: 4.40 ML?CONTINUOUS DOSE: 3.20 ML?EXTRA DOSE: 2.20 ML
     Route: 050
     Dates: end: 20180516
  2. STALEVO [Concomitant]
     Active Substance: CARBIDOPA\ENTACAPONE\LEVODOPA
     Indication: PARKINSON^S DISEASE
     Route: 048
  3. DUODOPA [Suspect]
     Active Substance: CARBIDOPA\LEVODOPA
     Indication: PARKINSON^S DISEASE
     Dosage: MORNING DOSE: 4.40 ML?CONTINUOUS DOSE: 3.20 ML?EXTRA DOSE: 2.00 ML
     Route: 050
     Dates: start: 20151110
  4. DUODOPA [Suspect]
     Active Substance: CARBIDOPA\LEVODOPA
     Dosage: MORNING DOSE: 4.40 ML?CONTINUOUS DOSE: 3.40 ML?EXTRA DOSE: 2.20 ML
     Route: 050
     Dates: start: 20180516
  5. MADOPAR [Concomitant]
     Active Substance: BENSERAZIDE HYDROCHLORIDE\LEVODOPA
     Indication: PARKINSON^S DISEASE
     Route: 048

REACTIONS (8)
  - Gastrointestinal infection [Not Recovered/Not Resolved]
  - Dyskinesia [Recovered/Resolved]
  - Dysphagia [Recovering/Resolving]
  - Bradykinesia [Recovered/Resolved]
  - Asthenia [Not Recovered/Not Resolved]
  - Dysuria [Not Recovered/Not Resolved]
  - Abdominal distension [Recovering/Resolving]
  - Flatulence [Recovering/Resolving]

NARRATIVE: CASE EVENT DATE: 20180110
